FAERS Safety Report 9925599 (Version 1)
Quarter: 2014Q1

REPORT INFORMATION
  Report Type: Spontaneous
  Country: DE (occurrence: DE)
  Receive Date: 20140226
  Receipt Date: 20140226
  Transmission Date: 20141002
  Serious: Yes (Hospitalization)
  Sender: FDA-Public Use
  Company Number: DE-PFIZER INC-2014051998

PATIENT
  Sex: Female

DRUGS (1)
  1. DICLOFENAC [Suspect]
     Indication: SPINAL PAIN
     Dosage: 75 MG, 2X/DAY (TAKEN 3 TABLETS TOTAL)
     Route: 048

REACTIONS (4)
  - Gastrointestinal haemorrhage [Not Recovered/Not Resolved]
  - Enterocolitis haemorrhagic [Not Recovered/Not Resolved]
  - Gastritis [Not Recovered/Not Resolved]
  - Haematochezia [Not Recovered/Not Resolved]
